FAERS Safety Report 9802551 (Version 2)
Quarter: 2014Q1

REPORT INFORMATION
  Report Type: Spontaneous
  Country: US (occurrence: US)
  Receive Date: 20140108
  Receipt Date: 20140207
  Transmission Date: 20141002
  Serious: Yes (Death)
  Sender: FDA-Public Use
  Company Number: US-ROCHE-1330512

PATIENT
  Age: 63 Year
  Sex: Male

DRUGS (2)
  1. LUCENTIS [Suspect]
     Indication: DIABETIC RETINAL OEDEMA
     Route: 065
     Dates: start: 20120622
  2. LUCENTIS [Suspect]
     Indication: DIABETIC RETINOPATHY

REACTIONS (1)
  - Death [Fatal]
